FAERS Safety Report 16406908 (Version 1)
Quarter: 2019Q2

REPORT INFORMATION
  Report Type: Spontaneous
  Country: ES (occurrence: ES)
  Receive Date: 20190607
  Receipt Date: 20190607
  Transmission Date: 20190711
  Serious: Yes (Other)
  Sender: FDA-Public Use
  Company Number: ES-BAXTER-2019BAX011531

PATIENT
  Age: 24 Week

DRUGS (6)
  1. FENTANYL. [Suspect]
     Active Substance: FENTANYL
     Indication: ANAESTHESIA PROCEDURE
     Dosage: 10-20 MICROGRAM/KILOGRAM
     Route: 030
  2. VECURONIUM [Suspect]
     Active Substance: VECURONIUM BROMIDE
     Indication: ANAESTHESIA PROCEDURE
     Route: 030
  3. REMIFENTANIL [Suspect]
     Active Substance: REMIFENTANIL
     Indication: PAIN MANAGEMENT
     Route: 064
  4. SEVOFLURANO 100% BAXTER [Suspect]
     Active Substance: SEVOFLURANE
     Indication: INDUCTION OF ANAESTHESIA
     Route: 064
  5. PHENYLEPHRINE [Suspect]
     Active Substance: PHENYLEPHRINE\PHENYLEPHRINE HYDROCHLORIDE
     Indication: PAIN MANAGEMENT
     Route: 064
  6. ATROPINE. [Suspect]
     Active Substance: ATROPINE
     Indication: ANAESTHESIA PROCEDURE
     Route: 030

REACTIONS (4)
  - Bradycardia foetal [Recovered/Resolved]
  - Foetal exposure during pregnancy [Unknown]
  - Anaesthetic complication [Unknown]
  - Procedural pain [Unknown]
